FAERS Safety Report 4977494-6 (Version None)
Quarter: 2006Q2

REPORT INFORMATION
  Report Type: 
  Country: None (occurrence: None)
  Receive Date: 20060420
  Receipt Date: 20060411
  Transmission Date: 20061013
  Serious: Yes (Other)
  Sender: FDA-Public Use
  Company Number: SE-JNJFOC-20060402468

PATIENT
  Age: 37 Year
  Sex: Male

DRUGS (8)
  1. REMICADE [Suspect]
     Route: 042
  2. REMICADE [Suspect]
     Indication: RHEUMATOID ARTHRITIS
     Route: 042
  3. METOJECT [Concomitant]
  4. FOLACIN [Concomitant]
  5. FOLACIN [Concomitant]
  6. ACETAMINOPHEN [Concomitant]
  7. ORUDIS RETARD [Concomitant]
  8. FLUTIDE DISKUS [Concomitant]

REACTIONS (5)
  - DYSPNOEA [None]
  - HYPERHIDROSIS [None]
  - INFUSION RELATED REACTION [None]
  - OCULAR HYPERAEMIA [None]
  - VOMITING [None]
